FAERS Safety Report 23787799 (Version 1)
Quarter: 2024Q2

REPORT INFORMATION
  Report Type: Spontaneous
  Country: IT (occurrence: IT)
  Receive Date: 20240426
  Receipt Date: 20240426
  Transmission Date: 20240716
  Serious: Yes (Death, Other)
  Sender: FDA-Public Use
  Company Number: IT-MYLANLABS-2024M1015555

PATIENT
  Sex: Female

DRUGS (1)
  1. CREON [Suspect]
     Active Substance: PANCRELIPASE AMYLASE\PANCRELIPASE LIPASE\PANCRELIPASE PROTEASE
     Indication: Pancreatic enzyme replacement therapy
     Dosage: CREON 10.000
     Route: 048

REACTIONS (8)
  - Death [Fatal]
  - Dyspepsia [Unknown]
  - Product availability issue [Unknown]
  - Gastrointestinal disorder [Unknown]
  - Pain [Unknown]
  - Asthenia [Unknown]
  - Pancreatic carcinoma recurrent [Unknown]
  - Intentional product misuse [Unknown]
